FAERS Safety Report 6608771-0 (Version None)
Quarter: 2010Q1

REPORT INFORMATION
  Report Type: 
  Country: None (occurrence: None)
  Receive Date: 20100224
  Receipt Date: 20100224
  Transmission Date: 20100710
  Serious: No
  Sender: FDA-Public Use
  Company Number: None

PATIENT
  Age: 15 Year
  Sex: Male
  Weight: 45.3597 kg

DRUGS (11)
  1. QUETIAPINE [Suspect]
     Dosage: 100MG PO, 1 DOSE
     Route: 048
  2. DEPAKOTE [Concomitant]
  3. LORATADINE [Concomitant]
  4. MELATONIN [Concomitant]
  5. FLORAJEN 3 [Concomitant]
  6. VIT D [Concomitant]
  7. VIT C [Concomitant]
  8. CLOMIPRAMINE HCL [Concomitant]
  9. IBUPROFEN [Concomitant]
  10. ORAJEL [Concomitant]
  11. TRIPLE ANTIBIOTIC OINT [Concomitant]

REACTIONS (1)
  - RASH [None]
